FAERS Safety Report 16467971 (Version 1)
Quarter: 2019Q2

REPORT INFORMATION
  Report Type: Report from Study
  Country: GR (occurrence: GR)
  Receive Date: 20190624
  Receipt Date: 20190624
  Transmission Date: 20190711
  Serious: Yes (Other)
  Sender: FDA-Public Use
  Company Number: GR-ROCHE-2335995

PATIENT

DRUGS (2)
  1. TEMOZOLOMIDE. [Suspect]
     Active Substance: TEMOZOLOMIDE
     Indication: NEUROENDOCRINE TUMOUR
     Route: 048
  2. CAPECITABINE. [Suspect]
     Active Substance: CAPECITABINE
     Indication: NEUROENDOCRINE TUMOUR
     Route: 048

REACTIONS (21)
  - Hepatobiliary disease [Unknown]
  - Pancytopenia [Unknown]
  - Platelet count decreased [Unknown]
  - Bone marrow failure [Unknown]
  - Thrombocytopenia [Unknown]
  - Constipation [Unknown]
  - Stomatitis [Unknown]
  - Abdominal pain [Unknown]
  - Nausea [Unknown]
  - White blood cell count decreased [Unknown]
  - Anaemia [Unknown]
  - Gastrointestinal haemorrhage [Unknown]
  - Haematocrit decreased [Unknown]
  - Neutropenia [Unknown]
  - Fatigue [Unknown]
  - Vomiting [Unknown]
  - Chronic kidney disease [Unknown]
  - Diarrhoea [Unknown]
  - Decreased appetite [Unknown]
  - Peripheral sensory neuropathy [Unknown]
  - Palmar-plantar erythrodysaesthesia syndrome [Unknown]
